FAERS Safety Report 24327601 (Version 1)
Quarter: 2024Q3

REPORT INFORMATION
  Report Type: Spontaneous
  Country: US (occurrence: US)
  Receive Date: 20240917
  Receipt Date: 20240917
  Transmission Date: 20241017
  Serious: Yes (Hospitalization, Other)
  Sender: JEROME STEVENS
  Company Number: US-Jerome Stevens Pharmaceuticals, Inc.-2161697

PATIENT
  Age: 78 Year
  Sex: Female

DRUGS (13)
  1. DIGOXIN [Suspect]
     Active Substance: DIGOXIN
  2. EMPAGLIFLOZIN [Suspect]
     Active Substance: EMPAGLIFLOZIN
  3. FUROSEMIDE [Concomitant]
     Active Substance: FUROSEMIDE
  4. EMPAGLIFLOZIN [Concomitant]
     Active Substance: EMPAGLIFLOZIN
  5. DILTIAZEM [Concomitant]
     Active Substance: DILTIAZEM
  6. METOPROLOL SUCCINATE [Concomitant]
     Active Substance: METOPROLOL SUCCINATE
  7. METFORMIN [Concomitant]
     Active Substance: METFORMIN HYDROCHLORIDE
  8. SPIRONOLACTONE [Concomitant]
     Active Substance: SPIRONOLACTONE
  9. DILTIAZEM [Suspect]
     Active Substance: DILTIAZEM
  10. METOPROLOL SUCCINATE [Suspect]
     Active Substance: METOPROLOL SUCCINATE
  11. METFORMIN [Suspect]
     Active Substance: METFORMIN HYDROCHLORIDE
  12. SPIRONOLACTONE [Suspect]
     Active Substance: SPIRONOLACTONE
  13. FUROSEMIDE [Suspect]
     Active Substance: FUROSEMIDE

REACTIONS (4)
  - Blood potassium increased [Recovering/Resolving]
  - Toxicity to various agents [Recovered/Resolved]
  - Cardioactive drug level increased [Recovered/Resolved]
  - Acute kidney injury [Recovering/Resolving]
